FAERS Safety Report 6571318-1 (Version None)
Quarter: 2010Q1

REPORT INFORMATION
  Report Type: 
  Country: None (occurrence: None)
  Receive Date: 20100201
  Receipt Date: 20100125
  Transmission Date: 20100710
  Serious: Yes (Hospitalization, Other)
  Sender: FDA-Public Use
  Company Number: DSA_42480_2010

PATIENT
  Sex: Male
  Weight: 66 kg

DRUGS (8)
  1. VASOTEC [Suspect]
     Indication: DRUG USE FOR UNKNOWN INDICATION
     Dosage: (DF)
     Dates: end: 20091231
  2. VELCADE [Suspect]
     Indication: ACUTE MYELOID LEUKAEMIA
     Dosage: (1.3 MG/M2, CYCLIC), (1.0 MG/M2, CYCLIC)
     Dates: start: 20091224, end: 20091231
  3. VELCADE [Suspect]
     Indication: ACUTE MYELOID LEUKAEMIA
     Dosage: (1.3 MG/M2, CYCLIC), (1.0 MG/M2, CYCLIC)
     Dates: start: 20091021
  4. CYTARABINE [Suspect]
     Indication: ACUTE MYELOID LEUKAEMIA
     Dosage: (100 MG/M2, CYCLIC), (2000 MG/M2; CYCLIC)
     Dates: start: 20091224, end: 20091231
  5. CYTARABINE [Suspect]
     Indication: ACUTE MYELOID LEUKAEMIA
     Dosage: (100 MG/M2, CYCLIC), (2000 MG/M2; CYCLIC)
     Dates: start: 20091021
  6. ECOTRIN (NOT SPECIFIED) [Suspect]
     Indication: DRUG USE FOR UNKNOWN INDICATION
     Dosage: (DF)
  7. NEURONTIN [Suspect]
     Indication: DRUG USE FOR UNKNOWN INDICATION
     Dosage: (DF)
  8. PLAVIX [Suspect]
     Indication: DRUG USE FOR UNKNOWN INDICATION
     Dosage: (DF)

REACTIONS (15)
  - AUTONOMIC NERVOUS SYSTEM IMBALANCE [None]
  - CEREBRAL INFARCTION [None]
  - CONTUSION [None]
  - FALL [None]
  - HAEMATOCRIT DECREASED [None]
  - HAEMATOMA [None]
  - HAEMOGLOBIN DECREASED [None]
  - LOSS OF CONSCIOUSNESS [None]
  - NEUROPATHY PERIPHERAL [None]
  - ORTHOSTATIC HYPOTENSION [None]
  - PARAESTHESIA [None]
  - PLATELET COUNT DECREASED [None]
  - SUBARACHNOID HAEMORRHAGE [None]
  - SYNCOPE [None]
  - THROMBOCYTOPENIA [None]
